FAERS Safety Report 22798487 (Version 2)
Quarter: 2023Q4

REPORT INFORMATION
  Report Type: Spontaneous
  Country: US (occurrence: US)
  Receive Date: 20230808
  Receipt Date: 20231124
  Transmission Date: 20240110
  Serious: No
  Sender: FDA-Public Use
  Company Number: US-SA-SAC20230803001205

PATIENT
  Age: 48 Year
  Sex: Female
  Weight: 70.295 kg

DRUGS (1)
  1. CEREZYME [Suspect]
     Active Substance: IMIGLUCERASE
     Indication: Gaucher^s disease
     Dosage: 3600 IU, QOW
     Route: 042
     Dates: start: 202106

REACTIONS (2)
  - Hypertension [Unknown]
  - Weight decreased [Unknown]

NARRATIVE: CASE EVENT DATE: 20230728
